FAERS Safety Report 6059240-0 (Version None)
Quarter: 2009Q1

REPORT INFORMATION
  Report Type: 
  Country: None (occurrence: None)
  Receive Date: 20090130
  Receipt Date: 20090128
  Transmission Date: 20090719
  Serious: Yes (Other)
  Sender: FDA-Public Use
  Company Number: ES-MERCK-0901ESP00049

PATIENT
  Age: 53 Year
  Sex: Male

DRUGS (4)
  1. ISENTRESS [Suspect]
     Route: 048
     Dates: start: 20080619, end: 20080911
  2. NORVIR [Suspect]
     Route: 048
     Dates: start: 20060913, end: 20080911
  3. PREZISTA [Suspect]
     Indication: ACQUIRED IMMUNODEFICIENCY SYNDROME
     Route: 048
     Dates: start: 20080616, end: 20080911
  4. TRUVADA [Suspect]
     Indication: ACQUIRED IMMUNODEFICIENCY SYNDROME
     Route: 048
     Dates: start: 20080616, end: 20080911

REACTIONS (1)
  - PANCREATITIS ACUTE [None]
